FAERS Safety Report 22064617 (Version 5)
Quarter: 2023Q2

REPORT INFORMATION
  Report Type: Other
  Country: JP (occurrence: JP)
  Receive Date: 20230306
  Receipt Date: 20230417
  Transmission Date: 20230722
  Serious: Yes (Other)
  Sender: FDA-Public Use
  Company Number: JP-CHUGAI-2022011172

PATIENT
  Age: 6 Year
  Sex: Male
  Weight: 10.1 kg

DRUGS (38)
  1. RISDIPLAM [Suspect]
     Active Substance: RISDIPLAM
     Indication: Spinal muscular atrophy
     Dates: start: 20220125, end: 20220130
  2. RISDIPLAM [Suspect]
     Active Substance: RISDIPLAM
     Dates: start: 20220131, end: 20220214
  3. RISDIPLAM [Suspect]
     Active Substance: RISDIPLAM
     Dates: start: 20220215, end: 20220302
  4. RISDIPLAM [Suspect]
     Active Substance: RISDIPLAM
     Dates: start: 20220303, end: 20220325
  5. RISDIPLAM [Suspect]
     Active Substance: RISDIPLAM
     Dates: start: 20220326, end: 20220621
  6. RISDIPLAM [Suspect]
     Active Substance: RISDIPLAM
     Dates: start: 20220622, end: 20220802
  7. RISDIPLAM [Suspect]
     Active Substance: RISDIPLAM
     Dates: start: 20220803, end: 20221004
  8. RISDIPLAM [Suspect]
     Active Substance: RISDIPLAM
     Dates: start: 20221025, end: 20221116
  9. RISDIPLAM [Suspect]
     Active Substance: RISDIPLAM
     Dates: start: 20221117, end: 20221207
  10. RISDIPLAM [Suspect]
     Active Substance: RISDIPLAM
     Dates: start: 20221208, end: 20221228
  11. RISDIPLAM [Suspect]
     Active Substance: RISDIPLAM
     Dates: start: 20221229, end: 20230118
  12. RISDIPLAM [Suspect]
     Active Substance: RISDIPLAM
     Dates: start: 20230119
  13. CARBOCYSTEINE [Concomitant]
     Active Substance: CARBOCYSTEINE
     Dosage: UNK
     Route: 050
  14. MUCOSAL [Concomitant]
     Dosage: UNK
     Route: 050
  15. HERBAL NOS [Concomitant]
     Active Substance: HERBALS
     Dosage: UNK
     Route: 050
  16. PETROLATUM [Concomitant]
     Active Substance: PETROLATUM
     Dosage: UNK
     Route: 065
  17. CLARITHROMYCIN [Concomitant]
     Active Substance: CLARITHROMYCIN
     Dosage: UNK
     Route: 050
     Dates: start: 20220125, end: 20220201
  18. REBAMIPIDE [Concomitant]
     Active Substance: REBAMIPIDE
     Dosage: UNK
     Route: 047
     Dates: end: 20220224
  19. ACETYLCYSTEINE [Concomitant]
     Active Substance: ACETYLCYSTEINE
     Dosage: UNK
     Route: 065
  20. AMOXICILLIN\CLAVULANATE POTASSIUM [Concomitant]
     Active Substance: AMOXICILLIN\CLAVULANATE POTASSIUM
     Dosage: UNK
     Route: 050
     Dates: start: 20220131, end: 20220204
  21. AMOXICILLIN\CLAVULANATE POTASSIUM [Concomitant]
     Active Substance: AMOXICILLIN\CLAVULANATE POTASSIUM
     Dosage: UNK
     Dates: start: 20220531, end: 20220606
  22. AMOXICILLIN\CLAVULANATE POTASSIUM [Concomitant]
     Active Substance: AMOXICILLIN\CLAVULANATE POTASSIUM
     Dosage: UNK
     Dates: start: 20221208, end: 20221213
  23. AMOXICILLIN\CLAVULANATE POTASSIUM [Concomitant]
     Active Substance: AMOXICILLIN\CLAVULANATE POTASSIUM
     Dosage: UNK
     Dates: start: 20230107, end: 20230112
  24. AZITHROMYCIN [Concomitant]
     Active Substance: AZITHROMYCIN
     Dosage: UNK
     Route: 050
     Dates: start: 20220217, end: 20220219
  25. CEFACLOR [Concomitant]
     Active Substance: CEFACLOR
     Dosage: UNK
     Route: 050
     Dates: start: 20220225, end: 20220301
  26. HYALURONATE SODIUM [Concomitant]
     Active Substance: HYALURONATE SODIUM
     Dosage: UNK
     Route: 047
  27. LEVOFLOXACIN [Concomitant]
     Active Substance: LEVOFLOXACIN
     Dosage: UNK
     Route: 047
     Dates: end: 20221102
  28. RINDERON VG [Concomitant]
     Active Substance: BETAMETHASONE VALERATE\GENTAMICIN SULFATE
     Dosage: UNK
     Route: 003
  29. ZINC OXIDE [Concomitant]
     Active Substance: ZINC OXIDE
     Dosage: UNK
     Route: 003
     Dates: end: 20221012
  30. CAMPHOR;SULFUR [Concomitant]
     Dosage: UNK
     Route: 065
     Dates: end: 20220131
  31. CEFTAZIDIME [Concomitant]
     Active Substance: CEFTAZIDIME
     Dosage: UNK
     Route: 065
     Dates: start: 20220204, end: 20220210
  32. LOCOID [Concomitant]
     Active Substance: HYDROCORTISONE BUTYRATE
     Dosage: UNK
     Route: 003
     Dates: end: 20230102
  33. MIYA-BM [Concomitant]
     Active Substance: CLOSTRIDIUM BUTYRICUM SPORES STRAIN M-55
     Dosage: UNK
     Dates: start: 20220815, end: 20220820
  34. MIYA-BM [Concomitant]
     Active Substance: CLOSTRIDIUM BUTYRICUM SPORES STRAIN M-55
     Dosage: UNK
     Dates: start: 20220930
  35. ZOSYN [Concomitant]
     Active Substance: PIPERACILLIN SODIUM\TAZOBACTAM SODIUM
     Dosage: UNK
     Route: 065
     Dates: start: 20220210, end: 20220214
  36. SODIUM PICOSULFATE [Concomitant]
     Active Substance: SODIUM PICOSULFATE
     Dosage: UNK
     Route: 050
     Dates: start: 20221012, end: 20221208
  37. MOSAPRIDE CITRATE [Concomitant]
     Active Substance: MOSAPRIDE CITRATE
     Dosage: UNK
     Route: 050
     Dates: start: 20221124
  38. U-PASTA [Concomitant]
     Dosage: UNK
     Route: 003
     Dates: start: 20221227

REACTIONS (3)
  - Gastrointestinal motility disorder [Recovering/Resolving]
  - Respiratory tract infection [Recovered/Resolved]
  - Bronchitis [Recovering/Resolving]

NARRATIVE: CASE EVENT DATE: 20220125
